FAERS Safety Report 17371014 (Version 4)
Quarter: 2021Q1

REPORT INFORMATION
  Report Type: Report from Study
  Country: None (occurrence: US)
  Receive Date: 20200205
  Receipt Date: 20210111
  Transmission Date: 20210419
  Serious: Yes (Other)
  Sender: FDA-Public Use
  Company Number: US-ABBVIE-20P-163-3261337-00

PATIENT
  Sex: Male

DRUGS (4)
  1. IMBRUVICA [Suspect]
     Active Substance: IBRUTINIB
     Route: 048
  2. IMBRUVICA [Suspect]
     Active Substance: IBRUTINIB
     Indication: WALDENSTROM^S MACROGLOBULINAEMIA
     Route: 048
     Dates: start: 20200122
  3. IMBRUVICA [Suspect]
     Active Substance: IBRUTINIB
     Route: 048
     Dates: start: 20200122
  4. IMBRUVICA [Suspect]
     Active Substance: IBRUTINIB
     Indication: MYELODYSPLASTIC SYNDROME
     Route: 048
     Dates: start: 2016

REACTIONS (8)
  - Food poisoning [Unknown]
  - Red blood cell count increased [Unknown]
  - Bronchitis chronic [Not Recovered/Not Resolved]
  - Semen discolouration [Not Recovered/Not Resolved]
  - Pulmonary fibrosis [Not Recovered/Not Resolved]
  - Diarrhoea [Unknown]
  - Haemoglobin abnormal [Unknown]
  - Lung induration [Unknown]

NARRATIVE: CASE EVENT DATE: 2020
